FAERS Safety Report 18920036 (Version 1)
Quarter: 2021Q1

REPORT INFORMATION
  Report Type: Spontaneous
  Country: BE (occurrence: BE)
  Receive Date: 20210222
  Receipt Date: 20210222
  Transmission Date: 20210420
  Serious: Yes (Death)
  Sender: FDA-Public Use
  Company Number: BE-TEVA-2021-BE-1881044

PATIENT
  Age: 82 Year
  Sex: Male
  Weight: 75 kg

DRUGS (5)
  1. RISPERIDONE 1 MG [Suspect]
     Active Substance: RISPERIDONE
     Dosage: DOSE INCREASE FROM 1 MG TO 1.5 MG PER DAY STAGGERED FROM FEBRUARY 2020
  2. TRAZODON 100 MG [Suspect]
     Active Substance: TRAZODONE HYDROCHLORIDE
     Dates: start: 2017
  3. OLANZAPINE 10 MG [Suspect]
     Active Substance: OLANZAPINE
     Dates: start: 2017
  4. CALCIUM CARBONATE. [Concomitant]
     Active Substance: CALCIUM CARBONATE
     Dosage: 1G
  5. ZOLPIDEM [Concomitant]
     Active Substance: ZOLPIDEM TARTRATE

REACTIONS (1)
  - Sudden death [Fatal]

NARRATIVE: CASE EVENT DATE: 20210125
